FAERS Safety Report 7510091-7 (Version None)
Quarter: 2011Q2

REPORT INFORMATION
  Report Type: 
  Country: None (occurrence: None)
  Receive Date: 20110527
  Receipt Date: 20110516
  Transmission Date: 20111010
  Serious: Yes (Hospitalization)
  Sender: FDA-Public Use
  Company Number: NO-MYLANLABS-2011S1010395

PATIENT
  Age: 21 Year
  Sex: Male

DRUGS (4)
  1. DOXORUBICIN HCL [Suspect]
     Indication: BONE SARCOMA
     Dosage: 75 MG/M2 AS A 4-H CONTINUOUS INFUSION IN EACH CYCLE
     Route: 065
  2. CISPLATIN [Suspect]
     Indication: BONE SARCOMA
     Dosage: 90 MG/M2 AS A 48-H CONTINUOUS INFUSION IN EACH CYCLE
     Route: 041
  3. METHOTREXATE [Suspect]
     Indication: BONE SARCOMA
     Dosage: 12 G/M2 AS A 4-H INFUSION IN EACH CYCLE
     Route: 065
  4. LEUCOVORIN CALCIUM [Concomitant]
     Dosage: STARTED 24H AFTER METHOTREXATE START; 11 DOSES PER CYCLE; RECEIVED 2 CYCLES
     Route: 065

REACTIONS (3)
  - ENTEROCOLITIS [None]
  - NEUTROPENIA [None]
  - THROMBOCYTOPENIA [None]
